FAERS Safety Report 8943965 (Version 1)
Quarter: 2012Q4

REPORT INFORMATION
  Report Type: Spontaneous
  Country: US (occurrence: None)
  Receive Date: 20121205
  Receipt Date: 20121205
  Transmission Date: 20130627
  Serious: Yes (Hospitalization)
  Sender: FDA-Public Use
  Company Number: None

PATIENT
  Age: 76 Year
  Sex: Female
  Weight: 96.16 kg

DRUGS (1)
  1. METHYLPREDNISOLONE [Suspect]
     Indication: CHRONIC BACK PAIN
     Dosage: 80mg PRN Epidural
     Route: 008
     Dates: start: 20120717, end: 20120926

REACTIONS (4)
  - Product contamination [None]
  - Fall [None]
  - Confusional state [None]
  - Musculoskeletal stiffness [None]
